FAERS Safety Report 5405997-9 (Version None)
Quarter: 2007Q3

REPORT INFORMATION
  Report Type: 
  Country: None (occurrence: None)
  Receive Date: 20070802
  Receipt Date: 20070802
  Transmission Date: 20080115
  Serious: Yes (Other)
  Sender: FDA-Public Use
  Company Number: None

PATIENT
  Age: 62 Year
  Sex: Female
  Weight: 72.5755 kg

DRUGS (1)
  1. NITROQUICK 0.4 MG [Suspect]
     Indication: MYOCARDIAL INFARCTION
     Dosage: 0.4 IF NEEDED LINGUNAL FOR ANGINA

REACTIONS (2)
  - CIRCUMSTANCE OR INFORMATION CAPABLE OF LEADING TO MEDICATION ERROR [None]
  - PHARMACEUTICAL PRODUCT COMPLAINT [None]
